FAERS Safety Report 25894115 (Version 2)
Quarter: 2025Q4

REPORT INFORMATION
  Report Type: Spontaneous
  Country: US (occurrence: US)
  Receive Date: 20251008
  Receipt Date: 20251022
  Transmission Date: 20260119
  Serious: No
  Sender: CALLIDITAS THERAPEUTICS AB
  Company Number: US-Calliditas-2025CAL03041

PATIENT
  Age: 42 Year
  Sex: Male

DRUGS (11)
  1. TARPEYO [Suspect]
     Active Substance: BUDESONIDE
     Indication: IgA nephropathy
     Route: 048
     Dates: start: 20250722
  2. AMOXICILLIN [Concomitant]
     Active Substance: AMOXICILLIN
  3. AZITHROMYCIN [Concomitant]
     Active Substance: AZITHROMYCIN
  4. ATORVASTATIN [Concomitant]
     Active Substance: ATORVASTATIN
  5. COLCHICINE [Concomitant]
     Active Substance: COLCHICINE
  6. FLONASE [Concomitant]
     Active Substance: FLUTICASONE PROPIONATE
  7. IRBESARTAN [Concomitant]
     Active Substance: IRBESARTAN
  8. JARDIANCE [Concomitant]
     Active Substance: EMPAGLIFLOZIN
  9. KERENDIA [Concomitant]
     Active Substance: FINERENONE
  10. LOKELMA [SODIUM ZIRCONIUM CYCLOSILICATE] [Concomitant]
  11. SODIUM BICARBONATE [Concomitant]
     Active Substance: SODIUM BICARBONATE

REACTIONS (4)
  - Dyspnoea [Unknown]
  - Cough [Unknown]
  - Product dose omission issue [Recovered/Resolved]
  - Blood pressure increased [Unknown]

NARRATIVE: CASE EVENT DATE: 20250923
